FAERS Safety Report 24212873 (Version 3)
Quarter: 2024Q3

REPORT INFORMATION
  Report Type: Spontaneous
  Country: US (occurrence: US)
  Receive Date: 20240815
  Receipt Date: 20240918
  Transmission Date: 20241016
  Serious: Yes (Hospitalization)
  Sender: SAREPTA THERAPEUTICS
  Company Number: US-SAREPTA THERAPEUTICS INC.-SRP2024-004956

PATIENT
  Age: 15 Year
  Sex: Male
  Weight: 52.154 kg

DRUGS (23)
  1. AMONDYS 45 [Suspect]
     Active Substance: CASIMERSEN
     Indication: Duchenne muscular dystrophy
     Dosage: 1600 MILLIGRAM, WEEKLY
     Route: 042
     Dates: start: 202401
  2. LORATADINE [Concomitant]
     Active Substance: LORATADINE
     Indication: Product used for unknown indication
     Dosage: 5 MG/5 ML
  3. VITAMIN D NOS [Concomitant]
     Active Substance: CHOLECALCIFEROL\ERGOCALCIFEROL
     Indication: Product used for unknown indication
     Dosage: 50 MICROGRAM, QD
     Route: 048
  4. FLUTICASONE [Concomitant]
     Active Substance: FLUTICASONE
     Indication: Product used for unknown indication
     Dosage: 50 MICROGRAM/ACT
     Route: 045
  5. LIDOCAINE\PRILOCAINE [Concomitant]
     Active Substance: LIDOCAINE\PRILOCAINE
     Indication: Product used for unknown indication
     Dosage: 2.5-2.5%
  6. LISINOPRIL [Concomitant]
     Active Substance: LISINOPRIL
     Indication: Product used for unknown indication
     Dosage: 5 MILLIGRAM, 1 TABLET, QD
     Route: 048
  7. METOPROLOL TARTRATE [Concomitant]
     Active Substance: METOPROLOL TARTRATE
     Indication: Product used for unknown indication
     Dosage: 25 MILLIGRAM, PER G TUBE BID
     Dates: start: 20240311
  8. METOPROLOL TARTRATE [Concomitant]
     Active Substance: METOPROLOL TARTRATE
     Dosage: 25 MILLIGRAM, PER G TUBE BID
     Dates: start: 20240312
  9. PREDNISOLONE [Concomitant]
     Active Substance: PREDNISOLONE
     Indication: Product used for unknown indication
     Dosage: 8.75 MILLILITER, 15MG/5ML,, QD
     Route: 048
  10. PREDNISOLONE [Concomitant]
     Active Substance: PREDNISOLONE
     Dosage: 30 MILLIGRAM, 10 ML, QD
     Route: 048
     Dates: start: 20240311
  11. SPIRONOLACTONE [Concomitant]
     Active Substance: SPIRONOLACTONE
     Indication: Product used for unknown indication
     Dosage: 25 MILLIGRAM, 1 TABLET, QD
     Route: 048
  12. GABAPENTIN [Concomitant]
     Active Substance: GABAPENTIN
     Indication: Product used for unknown indication
     Dosage: 50 MG/ML, 700 MG TOTAL, EVERY 8 HOURS
     Route: 048
     Dates: start: 20240417, end: 20240429
  13. ACETAMINOPHEN [Concomitant]
     Active Substance: ACETAMINOPHEN
     Indication: Product used for unknown indication
     Dosage: 640 MILLIGRAM TOTAL, EVERY 6 HOURS,PRN
     Route: 048
     Dates: start: 20240311
  14. BACLOFEN [Concomitant]
     Active Substance: BACLOFEN
     Indication: Product used for unknown indication
     Dosage: U5 MG/ML, 10 MG TOTAL, TWO TIMES DAILYNK
     Route: 048
     Dates: start: 20240312
  15. CLONIDINE [Concomitant]
     Active Substance: CLONIDINE
     Indication: Product used for unknown indication
     Dosage: 75 MICROGRAM TOTAL, EVERY 8 HOURS, ADDITIONALLY TAKE 50 MCG TOTAL EVERY 12 HOURS AS NEEDED
     Route: 048
     Dates: start: 20240311
  16. CLONIDINE [Concomitant]
     Active Substance: CLONIDINE
     Dosage: 50 MICROGRAM TOTAL, EVERY 8 HOURS, ADDITIONALLY TAKE 50 MCG TOTAL EVERY 12 HOURS AS NEEDED
     Route: 048
     Dates: start: 20240311
  17. CLONIDINE [Concomitant]
     Active Substance: CLONIDINE
     Dosage: 3.75 MILLILITER BY G TUBE EVERY 8 HOURS AND 2.475 ML EVERY 12 HOURS AS NEEDED
     Dates: start: 20240416
  18. ENOXAPARIN [Concomitant]
     Active Substance: ENOXAPARIN
     Indication: Product used for unknown indication
     Dosage: 40 MG/0.4 ML, 0.4 ML (40 MG TOTAL), QD
     Route: 058
     Dates: start: 20240312
  19. IBUPROFEN [Concomitant]
     Active Substance: IBUPROFEN
     Indication: Product used for unknown indication
     Dosage: 400 MILLIGRAM, 20 ML EVERY 12 HOURS AS NEEDED
     Route: 048
     Dates: start: 20240311
  20. MORPHINE [Concomitant]
     Active Substance: MORPHINE
     Indication: Product used for unknown indication
     Dosage: 6 MILLIGRAM, EVERY 12 HOURS AS NEEDED
     Route: 048
     Dates: start: 20240312
  21. VITAMINS [Concomitant]
     Active Substance: VITAMINS
     Indication: Product used for unknown indication
     Dosage: 1 TABLET, QD
     Route: 048
  22. POLYETHYLENE GLYCOL 3350 [Concomitant]
     Active Substance: POLYETHYLENE GLYCOL 3350
     Indication: Product used for unknown indication
     Dosage: 17 GRAM, 1 PACKET, TID
     Route: 048
     Dates: start: 20240311
  23. POTASSIUM;SODIUM PHOSPHATE [Concomitant]
     Indication: Product used for unknown indication
     Dosage: 280-160-250 MG, 1 PACKET, THREE TIMES DAILY
     Route: 048
     Dates: start: 20240311, end: 20240501

REACTIONS (1)
  - Pneumonia [Recovered/Resolved]

NARRATIVE: CASE EVENT DATE: 20240808
